FAERS Safety Report 5188739-4 (Version None)
Quarter: 2006Q4

REPORT INFORMATION
  Report Type: 
  Country: None (occurrence: None)
  Receive Date: 20061215
  Receipt Date: 20061204
  Transmission Date: 20070319
  Serious: Yes (Other)
  Sender: FDA-Public Use
  Company Number: 2006133524

PATIENT
  Age: 16 Year
  Sex: Female
  Weight: 83.0083 kg

DRUGS (1)
  1. ZIPRASIDONE HCL [Suspect]
     Indication: BIPOLAR DISORDER
     Dosage: 80 MG (40 MG, 2 IN 1 D)
     Dates: start: 20060823, end: 20060906

REACTIONS (7)
  - ABORTION SPONTANEOUS [None]
  - DRUG EXPOSURE DURING PREGNANCY [None]
  - EXTRAPYRAMIDAL DISORDER [None]
  - FEELING JITTERY [None]
  - PREGNANCY [None]
  - RETAINED PRODUCTS OF CONCEPTION [None]
  - SEDATION [None]
